FAERS Safety Report 9304723 (Version 1)
Quarter: 2013Q2

REPORT INFORMATION
  Report Type: Spontaneous
  Country: US (occurrence: US)
  Receive Date: 20130523
  Receipt Date: 20130523
  Transmission Date: 20140414
  Serious: No
  Sender: FDA-Public Use
  Company Number: US-BIOGENIDEC-2013BI046005

PATIENT
  Age: 26 Year
  Sex: Female

DRUGS (6)
  1. TYSABRI [Suspect]
     Indication: PRODUCT USED FOR UNKNOWN INDICATION
  2. TYSABRI [Suspect]
     Indication: PRODUCT USED FOR UNKNOWN INDICATION
     Route: 042
     Dates: start: 2013
  3. ZYRTEC [Concomitant]
     Indication: MULTIPLE ALLERGIES
  4. BENADRYL [Concomitant]
     Indication: MULTIPLE ALLERGIES
  5. NAPROXEN [Concomitant]
     Indication: PRODUCT USED FOR UNKNOWN INDICATION
  6. IBUPROFEN [Concomitant]
     Indication: PRODUCT USED FOR UNKNOWN INDICATION

REACTIONS (3)
  - Rash papular [Unknown]
  - Dermatitis allergic [Unknown]
  - Hypersensitivity [Unknown]
